FAERS Safety Report 22094185 (Version 1)
Quarter: 2023Q1

REPORT INFORMATION
  Report Type: Spontaneous
  Country: GB (occurrence: GB)
  Receive Date: 20230314
  Receipt Date: 20230314
  Transmission Date: 20230418
  Serious: Yes (Other)
  Sender: FDA-Public Use
  Company Number: GB-ABBVIE-4325203

PATIENT
  Age: 70 Year
  Sex: Female

DRUGS (2)
  1. OBINUTUZUMAB [Suspect]
     Active Substance: OBINUTUZUMAB
     Indication: Chronic lymphocytic leukaemia stage 3
     Route: 042
     Dates: start: 202203
  2. VENETOCLAX [Suspect]
     Active Substance: VENETOCLAX
     Indication: Chronic lymphocytic leukaemia stage 3
     Route: 050
     Dates: start: 202203, end: 202301

REACTIONS (2)
  - Cystitis haemorrhagic [Unknown]
  - Bacterial infection [Not Recovered/Not Resolved]
